FAERS Safety Report 17878035 (Version 1)
Quarter: 2020Q2

REPORT INFORMATION
  Report Type: Spontaneous
  Country: US (occurrence: US)
  Receive Date: 20200610
  Receipt Date: 20200610
  Transmission Date: 20200714
  Serious: No
  Sender: FDA-Public Use
  Company Number: US-SHIRE-US202018882

PATIENT
  Sex: Female

DRUGS (1)
  1. GATTEX [Suspect]
     Active Substance: TEDUGLUTIDE\WATER
     Indication: GASTROINTESTINAL INFECTION
     Dosage: 0.2260 UNIT UNKNOW,N 1X/DAY:QD
     Route: 058
     Dates: start: 20190812

REACTIONS (3)
  - Constipation [Not Recovered/Not Resolved]
  - Product use in unapproved indication [Unknown]
  - Flatulence [Not Recovered/Not Resolved]
